FAERS Safety Report 8307381-7 (Version None)
Quarter: 2012Q2

REPORT INFORMATION
  Report Type: 
  Country: None (occurrence: None)
  Receive Date: 20120424
  Receipt Date: 20120416
  Transmission Date: 20120825
  Serious: Yes (Hospitalization, Other)
  Sender: FDA-Public Use
  Company Number: US-BAYER-2010-001658

PATIENT
  Age: 30 Year
  Sex: Female
  Weight: 117.46 kg

DRUGS (1)
  1. YAZ [Suspect]
     Dosage: UNK
     Dates: start: 20070601, end: 20090501

REACTIONS (3)
  - CHOLECYSTITIS [None]
  - GALLBLADDER DISORDER [None]
  - BILIARY DYSKINESIA [None]
